FAERS Safety Report 8403078-3 (Version None)
Quarter: 2012Q2

REPORT INFORMATION
  Report Type: 
  Country: None (occurrence: None)
  Receive Date: 20120601
  Receipt Date: 20120528
  Transmission Date: 20120825
  Serious: Yes (Other)
  Sender: FDA-Public Use
  Company Number: GR-JNJFOC-20120203825

PATIENT
  Sex: Female

DRUGS (2)
  1. STELARA [Suspect]
     Indication: PSORIASIS
     Route: 058
     Dates: start: 20120524
  2. STELARA [Suspect]
     Route: 058

REACTIONS (3)
  - TRACHEOBRONCHITIS [None]
  - VIRAL INFECTION [None]
  - HEADACHE [None]
